FAERS Safety Report 19728492 (Version 1)
Quarter: 2021Q3

REPORT INFORMATION
  Report Type: Spontaneous
  Country: NL (occurrence: NL)
  Receive Date: 20210820
  Receipt Date: 20210820
  Transmission Date: 20211014
  Serious: Yes (Life-Threatening, Hospitalization)
  Sender: FDA-Public Use
  Company Number: NL-PFIZER INC-202101038504

PATIENT
  Sex: Female
  Weight: 60 kg

DRUGS (12)
  1. ATORVASTATINE [ATORVASTATIN] [Concomitant]
     Active Substance: ATORVASTATIN
  2. PREDNISON [Concomitant]
     Active Substance: PREDNISONE
  3. PANTOPRAZOLE [Concomitant]
     Active Substance: PANTOPRAZOLE
  4. ISOSORBIDEMONONITRAAT [Concomitant]
  5. RITUXIMAB. [Suspect]
     Active Substance: RITUXIMAB
     Indication: RHEUMATOID ARTHRITIS
     Dosage: 500 MG
     Dates: start: 20210707, end: 20210707
  6. LEFLUNOMIDE. [Concomitant]
     Active Substance: LEFLUNOMIDE
  7. RISEDRONIC ACID [Concomitant]
     Active Substance: RISEDRONIC ACID
  8. GLICLAZIDE [Concomitant]
     Active Substance: GLICLAZIDE
  9. METOPROLOL SUCCINATE. [Concomitant]
     Active Substance: METOPROLOL SUCCINATE
  10. GLUCIENT SR [Concomitant]
  11. EDOXABAN [Concomitant]
     Active Substance: EDOXABAN TOSYLATE
  12. LOSARTAN. [Concomitant]
     Active Substance: LOSARTAN

REACTIONS (1)
  - Cardiac asthma [Recovered/Resolved]
